FAERS Safety Report 15034283 (Version 1)
Quarter: 2018Q2

REPORT INFORMATION
  Report Type: Spontaneous
  Country: US (occurrence: US)
  Receive Date: 20180620
  Receipt Date: 20180620
  Transmission Date: 20180711
  Serious: No
  Sender: FDA-Public Use
  Company Number: US-TEVA-2018-US-911035

PATIENT
  Sex: Male

DRUGS (1)
  1. MUPIROCIN. [Suspect]
     Active Substance: MUPIROCIN
     Indication: LOCALISED INFECTION
     Route: 061

REACTIONS (5)
  - Skin exfoliation [Unknown]
  - Wrong technique in product usage process [Unknown]
  - Skin haemorrhage [Unknown]
  - Pain in extremity [Unknown]
  - Impaired work ability [Unknown]
